FAERS Safety Report 4597610-8 (Version None)
Quarter: 2005Q1

REPORT INFORMATION
  Report Type: 
  Country: None (occurrence: None)
  Receive Date: 20050228
  Receipt Date: 20050228
  Transmission Date: 20050727
  Serious: Yes (Hospitalization)
  Sender: FDA-Public Use
  Company Number: None

PATIENT
  Age: 52 Year
  Sex: Male
  Weight: 136.0791 kg

DRUGS (1)
  1. ENEMEEZ MINI ENEMAS [Suspect]
     Dosage: DAILY
     Dates: start: 20020101, end: 20041110

REACTIONS (4)
  - FISTULA [None]
  - LARGE INTESTINE PERFORATION [None]
  - SKIN ULCER [None]
  - SURGERY [None]
